FAERS Safety Report 9519744 (Version 1)
Quarter: 2013Q3

REPORT INFORMATION
  Report Type: Spontaneous
  Country: JP (occurrence: JP)
  Receive Date: 20130912
  Receipt Date: 20130912
  Transmission Date: 20140515
  Serious: Yes (Hospitalization, Other)
  Sender: FDA-Public Use
  Company Number: JP-TEVA-430982ISR

PATIENT
  Age: 62 Year
  Sex: Male

DRUGS (1)
  1. TRISONEX [Suspect]
     Indication: ACUTE PROMYELOCYTIC LEUKAEMIA
     Route: 041

REACTIONS (4)
  - Neutropenia [Recovered/Resolved]
  - Ventricular tachycardia [Recovered/Resolved]
  - Hepatitis B DNA assay positive [Unknown]
  - Herpes zoster [Recovered/Resolved]
